FAERS Safety Report 13062168 (Version 1)
Quarter: 2016Q4

REPORT INFORMATION
  Report Type: Spontaneous
  Country: US (occurrence: US)
  Receive Date: 20161226
  Receipt Date: 20161226
  Transmission Date: 20170207
  Serious: No
  Sender: FDA-Public Use
  Company Number: US-TEVA-719847ACC

PATIENT
  Sex: Female

DRUGS (1)
  1. COPAXONE [Suspect]
     Active Substance: GLATIRAMER ACETATE
     Dosage: FORM STRENGTH: UNKNOWN

REACTIONS (8)
  - Eye pain [Unknown]
  - Drug intolerance [Unknown]
  - Fatigue [Unknown]
  - Injection site mass [Unknown]
  - Adverse event [Unknown]
  - Injection site erythema [Unknown]
  - Treatment failure [Unknown]
  - Lipoatrophy [Unknown]
